FAERS Safety Report 11174797 (Version 4)
Quarter: 2015Q3

REPORT INFORMATION
  Report Type: Report from Study
  Country: CO (occurrence: CO)
  Receive Date: 20150609
  Receipt Date: 20150809
  Transmission Date: 20151125
  Serious: Yes (Death, Hospitalization, Disabling, Other)
  Sender: FDA-Public Use
  Company Number: CO-BRISTOL-MYERS SQUIBB COMPANY-BMS-2015-023174

PATIENT
  Age: 77 Year
  Sex: Female

DRUGS (1)
  1. IPILIMUMAB [Suspect]
     Active Substance: IPILIMUMAB
     Indication: METASTATIC MALIGNANT MELANOMA
     Dosage: UNK, EVERY 3 WEEKS
     Route: 042

REACTIONS (12)
  - Face oedema [Unknown]
  - Delirium [Unknown]
  - Constipation [Unknown]
  - Stomatitis [Recovered/Resolved]
  - Polydipsia [Unknown]
  - Dry mouth [Unknown]
  - Oedema peripheral [Recovered/Resolved]
  - Peripheral swelling [Recovered/Resolved]
  - Malignant neoplasm progression [Fatal]
  - Neurological symptom [Not Recovered/Not Resolved]
  - Decreased appetite [Unknown]
  - Neoplasm [Recovered/Resolved]

NARRATIVE: CASE EVENT DATE: 20140407
